FAERS Safety Report 9395804 (Version 1)
Quarter: 2013Q3

REPORT INFORMATION
  Report Type: Spontaneous
  Country: US (occurrence: US)
  Receive Date: 20130711
  Receipt Date: 20130711
  Transmission Date: 20140515
  Serious: No
  Sender: FDA-Public Use
  Company Number: US-COVIDIEN/TYCO HEALTHCARE/MALLINCKRODT-T201301644

PATIENT
  Sex: Female
  Weight: 72.56 kg

DRUGS (1)
  1. OXYCODONE/ACETAMINOPHEN [Suspect]
     Indication: PRODUCT USED FOR UNKNOWN INDICATION

REACTIONS (5)
  - Swelling face [Unknown]
  - Local swelling [Unknown]
  - Hot flush [Unknown]
  - Drug effect decreased [Unknown]
  - Product odour abnormal [None]
